FAERS Safety Report 19503852 (Version 1)
Quarter: 2021Q3

REPORT INFORMATION
  Report Type: Spontaneous
  Country: CA (occurrence: CA)
  Receive Date: 20210707
  Receipt Date: 20210707
  Transmission Date: 20211014
  Serious: Yes (Other)
  Sender: FDA-Public Use
  Company Number: CA-PFIZER INC-2021764319

PATIENT
  Age: 98 Year
  Sex: Male

DRUGS (15)
  1. LASIX [Concomitant]
     Active Substance: FUROSEMIDE
     Dosage: 1 TABLET, 2X/DAY FOR 30 DAYS
     Dates: start: 20210330
  2. VITAMIN D3 [Concomitant]
     Active Substance: CHOLECALCIFEROL
     Dosage: 2000 IU, DAILY FOR 100 DAYS
     Dates: start: 20170609
  3. ACETAMINOPHEN. [Concomitant]
     Active Substance: ACETAMINOPHEN
     Dosage: 1?2 TABLETS 3 TIMES DAILY FOR 50 DAYS
     Dates: start: 20200629
  4. COVERSYL [PERINDOPRIL ERBUMINE] [Concomitant]
     Active Substance: PERINDOPRIL ERBUMINE
     Dosage: 1 TABLET, DAILY FOR 90 DAYS
     Dates: start: 20190311
  5. ELIQUIS [Concomitant]
     Active Substance: APIXABAN
     Dosage: 2.5 MG, 2X/DAY
     Dates: start: 20170130
  6. FLUZONE HIGH?DOSE NOS [Concomitant]
     Active Substance: INFLUENZA A VIRUS A/CALIFORNIA/7/2009 X-179A (H1N1) ANTIGEN (FORMALDEHYDE INACTIVATED)\INFLUENZA A VIRUS A/VICTORIA/210/2009 X-187 (H3N2) ANTIGEN (FORMALDEHYDE INACTIVATED)\INFLUENZA B VIRUS B/BRISBANE/60/2008 ANTIGEN (FORMALDEHYDE INACTIVATED)
     Dosage: 180 MCG/0.5 ML 1SYRINGE
     Dates: start: 20181113
  7. AMLODIPINE [Concomitant]
     Active Substance: AMLODIPINE BESYLATE
     Dosage: 1 TABLET, DAILY FOR 30 DAYS, HOLD WHEN SBP { 130 MMHG
     Dates: start: 202104
  8. TIMOPTIC [Concomitant]
     Active Substance: TIMOLOL MALEATE
     Dosage: UNK
     Dates: start: 20150721
  9. OMNARIS [Concomitant]
     Active Substance: CICLESONIDE
     Dosage: 50 MCG, DAILY (2 SPRAYS), ONE TIME DAILY
     Dates: start: 20170605
  10. CLOBETASOL [CLOBETASOL PROPIONATE] [Concomitant]
     Dosage: 0.05 % APPLY BID PRN
     Dates: start: 20191206
  11. CALCIUM [Concomitant]
     Active Substance: CALCIUM
     Dosage: 500 MG, 2X/DAY FOR 100 DAYS
     Dates: start: 20170609
  12. NORVASC [Suspect]
     Active Substance: AMLODIPINE BESYLATE
     Dosage: 5 MG
  13. RISEDRONATE [Concomitant]
     Active Substance: RISEDRONATE SODIUM
     Dosage: 35 MG, WEEKLY
     Dates: start: 201706
  14. METOPROLOL TARTRATE. [Concomitant]
     Active Substance: METOPROLOL TARTRATE
     Dosage: 1 TABLET, 2X/DAY FOR 90 DAYS
     Dates: start: 20210317
  15. VITAMIN D3 [Concomitant]
     Active Substance: CHOLECALCIFEROL
     Dosage: 1000 IU, DAILY FOR 100 DAYS
     Dates: start: 20170609

REACTIONS (13)
  - Aortic valve incompetence [Unknown]
  - Mitral valve incompetence [Unknown]
  - Glaucoma [Unknown]
  - Upper respiratory tract infection [Recovering/Resolving]
  - Atrial fibrillation [Unknown]
  - Hypertension [Unknown]
  - Palpitations [Unknown]
  - Peripheral arterial occlusive disease [Unknown]
  - Weight decreased [Unknown]
  - Bronchitis [Recovering/Resolving]
  - Osteoporosis [Unknown]
  - Heart rate decreased [Unknown]
  - Pneumonia [Unknown]

NARRATIVE: CASE EVENT DATE: 2017
